FAERS Safety Report 9114555 (Version 2)
Quarter: 2013Q2

REPORT INFORMATION
  Report Type: Spontaneous
  Country: US (occurrence: US)
  Receive Date: 20130128
  Receipt Date: 20130423
  Transmission Date: 20140414
  Serious: No
  Sender: FDA-Public Use
  Company Number: US-009507513-1301USA011152

PATIENT
  Age: 42 Year
  Sex: Female
  Weight: 79.82 kg

DRUGS (2)
  1. SYLATRON [Suspect]
     Indication: MALIGNANT MELANOMA
     Dosage: 250.2 DAILY/ 3 MG/KG
     Route: 058
     Dates: start: 20120910, end: 20130116
  2. SYLATRON [Suspect]
     Dosage: 33 %
     Dates: start: 2013

REACTIONS (1)
  - Alopecia [Recovered/Resolved]
